FAERS Safety Report 7971311-8 (Version None)
Quarter: 2011Q4

REPORT INFORMATION
  Report Type: 
  Country: None (occurrence: None)
  Receive Date: 20111212
  Receipt Date: 20111206
  Transmission Date: 20120403
  Serious: Yes (Other)
  Sender: FDA-Public Use
  Company Number: PHHY2011CA08891

PATIENT
  Sex: Female

DRUGS (4)
  1. ZOLEDRONOC ACID [Suspect]
     Indication: OSTEOPOROSIS
     Dosage: UNK UKN, UNK
     Route: 042
     Dates: start: 20110131
  2. RAMIPRIL [Concomitant]
  3. MYCOPHENOLATE MOFETIL (CELLCEPT) [Concomitant]
  4. ERYTHROMYCIN [Concomitant]

REACTIONS (7)
  - MUSCULOSKELETAL PAIN [None]
  - SYNOVITIS [None]
  - BONE PAIN [None]
  - CHILLS [None]
  - PYREXIA [None]
  - PAIN [None]
  - HOT FLUSH [None]
